FAERS Safety Report 7941248-9 (Version None)
Quarter: 2011Q4

REPORT INFORMATION
  Report Type: 
  Country: None (occurrence: None)
  Receive Date: 20111122
  Receipt Date: 20111122
  Transmission Date: 20120403
  Serious: Yes (Other)
  Sender: FDA-Public Use
  Company Number: None

PATIENT
  Sex: Male

DRUGS (1)
  1. AVONEX [Suspect]
     Dosage: 30MCG ONCE WEEKLY SUBCUTANEOUS
     Route: 058
     Dates: start: 20110401, end: 20111117

REACTIONS (2)
  - PARANOIA [None]
  - ANXIETY [None]
